FAERS Safety Report 8608739-9 (Version None)
Quarter: 2012Q3

REPORT INFORMATION
  Report Type: 
  Country: None (occurrence: None)
  Receive Date: 20120821
  Receipt Date: 20120806
  Transmission Date: 20120928
  Serious: Yes (Other)
  Sender: FDA-Public Use
  Company Number: IE-SPECTRUM PHARMACEUTICALS, INC.-12-F-IE-00120

PATIENT
  Age: 71 Year
  Sex: Male

DRUGS (1)
  1. FLUOROURACIL [Suspect]
     Indication: COLON CANCER
     Dosage: UNK
     Route: 065

REACTIONS (5)
  - SKIN EXFOLIATION [None]
  - PHOTOSENSITIVITY REACTION [None]
  - SKIN PLAQUE [None]
  - ERYTHEMA ANNULARE [None]
  - CUTANEOUS LUPUS ERYTHEMATOSUS [None]
